FAERS Safety Report 9057547 (Version 1)
Quarter: 2013Q1

REPORT INFORMATION
  Report Type: Spontaneous
  Country: US (occurrence: US)
  Receive Date: 20130204
  Receipt Date: 20130204
  Transmission Date: 20140127
  Serious: Yes (Other)
  Sender: FDA-Public Use
  Company Number: US-PFIZER INC-2013038159

PATIENT
  Age: 73 Year
  Sex: Male
  Weight: 78.46 kg

DRUGS (9)
  1. SUTENT [Suspect]
     Indication: METASTATIC RENAL CELL CARCINOMA
     Dosage: 50 MG, CYCLIC (42 DAY CYCLE)
     Dates: start: 20120221
  2. SUTENT [Suspect]
     Dosage: 37.5 MG (25+12.5 MG), CYCLIC (42 DAY CYCLE)
     Dates: start: 20130125
  3. FRAGMIN [Concomitant]
     Dosage: 2 DF, 1X/DAY
     Dates: start: 20120221
  4. ES TYLENOL [Concomitant]
     Dosage: AS NEEDED
  5. VITAMIN B12 [Concomitant]
     Dosage: UNK
  6. VITAMIN D3 [Concomitant]
     Dosage: UNK
  7. CENTRUM SILVER MULTIVITAMIN [Concomitant]
     Dosage: UNK
  8. ALLOPURINOL [Concomitant]
     Dosage: UNK
  9. SYNTHROID [Concomitant]
     Dosage: UNK

REACTIONS (4)
  - Atrial fibrillation [Unknown]
  - Palmar-plantar erythrodysaesthesia syndrome [Unknown]
  - Hyperkeratosis [Unknown]
  - Diarrhoea [Unknown]
